FAERS Safety Report 6693391-2 (Version None)
Quarter: 2010Q2

REPORT INFORMATION
  Report Type: 
  Country: None (occurrence: None)
  Receive Date: 20100420
  Receipt Date: 20100409
  Transmission Date: 20101027
  Serious: Yes (Hospitalization, Other)
  Sender: FDA-Public Use
  Company Number: 230021J08CAN

PATIENT
  Sex: Female

DRUGS (5)
  1. REBIF [Suspect]
     Indication: MULTIPLE SCLEROSIS
     Dosage: 44 MCG, 3 IN 1 WK, SUBCUTANEOUS
     Route: 058
     Dates: start: 20021009
  2. APO-AZITHROMYCIN (ANTIBIOTIC)(AZITHROMYCIN) [Concomitant]
  3. BACLOPHEN (BACLOFEN) [Concomitant]
  4. ADVIL LIQUI-GELS [Concomitant]
  5. PREVACID [Concomitant]

REACTIONS (21)
  - ANOSMIA [None]
  - ARNOLD-CHIARI MALFORMATION [None]
  - CHEST PAIN [None]
  - CHOLECYSTITIS CHRONIC [None]
  - CHOLELITHIASIS [None]
  - CHOLESTEROSIS [None]
  - CONCUSSION [None]
  - CONDITION AGGRAVATED [None]
  - FATIGUE [None]
  - HEADACHE [None]
  - HYPOAESTHESIA [None]
  - INJECTION SITE RASH [None]
  - LIVER DISORDER [None]
  - MALAISE [None]
  - MULTIPLE SCLEROSIS [None]
  - ROAD TRAFFIC ACCIDENT [None]
  - TEMPOROMANDIBULAR JOINT SYNDROME [None]
  - TINNITUS [None]
  - VERTIGO [None]
  - VOMITING [None]
  - WHIPLASH INJURY [None]
